FAERS Safety Report 16732550 (Version 1)
Quarter: 2019Q3

REPORT INFORMATION
  Report Type: Spontaneous
  Country: BR (occurrence: BR)
  Receive Date: 20190823
  Receipt Date: 20190823
  Transmission Date: 20191005
  Serious: Yes (Other)
  Sender: FDA-Public Use
  Company Number: PHHY2019BR126143

PATIENT
  Age: 64 Year
  Sex: Female
  Weight: 140 kg

DRUGS (8)
  1. FORASEQ [Suspect]
     Active Substance: BUDESONIDE\FORMOTEROL FUMARATE
     Indication: ASTHMA
     Dosage: 1 DF, TID
     Route: 055
     Dates: start: 2003
  2. RIVOTRIL [Concomitant]
     Active Substance: CLONAZEPAM
     Indication: INSOMNIA
     Dosage: 1 DF, QD
     Route: 048
     Dates: start: 2009
  3. GARDENAL [Concomitant]
     Active Substance: PHENOBARBITAL
     Indication: EPILEPSY
     Dosage: 1 DF, QD (SINCE 14 YEARS OLD)
     Route: 048
  4. FORASEQ [Suspect]
     Active Substance: BUDESONIDE\FORMOTEROL FUMARATE
     Dosage: 1 DF, QD
     Route: 055
     Dates: start: 2010
  5. FLUOXETINE [Suspect]
     Active Substance: FLUOXETINE HYDROCHLORIDE
     Indication: DEPRESSION
     Dosage: 1 DF, QD (3 YEARS AGO)
     Route: 048
  6. HIDRION [Concomitant]
     Active Substance: FUROSEMIDE\POTASSIUM CHLORIDE
     Indication: HYPERTENSION
     Dosage: 1 DF, QD
     Route: 048
  7. DIAZEPAM. [Concomitant]
     Active Substance: DIAZEPAM
     Indication: INSOMNIA
     Dosage: 1 DF, QD
     Route: 048
     Dates: start: 2009
  8. FORASEQ [Suspect]
     Active Substance: BUDESONIDE\FORMOTEROL FUMARATE
     Indication: BRONCHITIS
     Dosage: 1 DF, TID
     Route: 055
     Dates: start: 2009

REACTIONS (24)
  - Gait inability [Not Recovered/Not Resolved]
  - Platelet count decreased [Unknown]
  - Hypertension [Not Recovered/Not Resolved]
  - Ocular hyperaemia [Recovering/Resolving]
  - Chikungunya virus infection [Recovering/Resolving]
  - Eye irritation [Unknown]
  - Weight increased [Not Recovered/Not Resolved]
  - Immune system disorder [Unknown]
  - Cholelithiasis [Not Recovered/Not Resolved]
  - Umbilical hernia [Unknown]
  - Dyspnoea [Unknown]
  - Pain [Not Recovered/Not Resolved]
  - Hernia [Not Recovered/Not Resolved]
  - Gallbladder disorder [Not Recovered/Not Resolved]
  - Dyspnoea [Recovered/Resolved]
  - Joint dislocation [Not Recovered/Not Resolved]
  - Arthralgia [Not Recovered/Not Resolved]
  - Chikungunya virus infection [Recovered/Resolved]
  - Hypersensitivity [Unknown]
  - Malaise [Unknown]
  - Bronchitis [Unknown]
  - Pruritus [Unknown]
  - Pigmentation disorder [Not Recovered/Not Resolved]
  - Thrombosis [Unknown]

NARRATIVE: CASE EVENT DATE: 2009
